FAERS Safety Report 7893856-1 (Version None)
Quarter: 2011Q4

REPORT INFORMATION
  Report Type: 
  Country: None (occurrence: None)
  Receive Date: 20111104
  Receipt Date: 20111028
  Transmission Date: 20120403
  Serious: Yes (Other)
  Sender: FDA-Public Use
  Company Number: PHEH2008US06596

PATIENT
  Sex: Male

DRUGS (44)
  1. FOSAMAX [Suspect]
     Dates: start: 20010101, end: 20020201
  2. ASPIRIN [Concomitant]
     Dosage: 81 MG, QD
     Route: 048
  3. GLUCOSAMINE SULFATE [Concomitant]
     Dosage: 750 MG, BID
  4. LIPITOR [Concomitant]
  5. WARFARIN SODIUM [Concomitant]
  6. TOPROL-XL [Concomitant]
  7. LISINOPRIL [Concomitant]
  8. PLENDIL [Concomitant]
     Dosage: 5 MG, QD
  9. AMITRIPTYLINE HCL [Concomitant]
  10. GARLIC [Concomitant]
     Dosage: 500 MG, BID
     Route: 048
  11. OXYCONTIN [Concomitant]
  12. INSULIN [Concomitant]
  13. CRESTOR [Concomitant]
  14. PLETAL [Concomitant]
  15. WELLBUTRIN [Concomitant]
  16. ZOMETA [Suspect]
     Indication: BONE DISORDER
     Dates: start: 20020606
  17. ASPIRIN [Concomitant]
  18. CELEBREX [Concomitant]
     Dosage: 200 MG, QD
  19. MULTI-VITAMINS [Concomitant]
     Route: 048
  20. RANITIDINE [Concomitant]
  21. METOCLOPRAMIDE [Concomitant]
  22. KEFLEX [Concomitant]
  23. AREDIA [Suspect]
     Indication: BONE DISORDER
     Dates: end: 20020101
  24. PLAVIX [Concomitant]
  25. LIPITOR [Concomitant]
     Dosage: 40 MG, QD
     Route: 048
  26. NAPROSYN [Concomitant]
     Dosage: 500 MG, PRN
  27. PROTONIX [Concomitant]
  28. ZOFRAN [Concomitant]
  29. ALDACTONE [Concomitant]
  30. NEURONTIN [Concomitant]
  31. AMOXICILLIN [Concomitant]
     Dosage: 500 MG, QD
     Route: 048
  32. LANTUS [Concomitant]
  33. MEXITIL [Concomitant]
     Dosage: 150 MG, TID
  34. CELEXA [Concomitant]
     Dosage: 60 MG, QHS
  35. FELDENE [Concomitant]
  36. BENADRYL [Concomitant]
  37. LASIX [Concomitant]
  38. GLUCOVANCE [Concomitant]
  39. GLUCOSAMINE [Concomitant]
     Dosage: 500 MG, TID
  40. LANSOPRAZOLE [Concomitant]
     Dosage: 30 MG, QD
     Route: 048
  41. FISH OIL [Concomitant]
     Dosage: 1000 MG, QD
  42. COREG [Concomitant]
  43. GLIPIZIDE [Concomitant]
  44. ALLOPURINOL [Concomitant]

REACTIONS (75)
  - ANXIETY [None]
  - PULMONARY EMBOLISM [None]
  - NEOPLASM MALIGNANT [None]
  - PULMONARY HYPERTENSION [None]
  - ABDOMINAL PAIN UPPER [None]
  - COLONIC POLYP [None]
  - NEUROPATHY PERIPHERAL [None]
  - LYMPHADENITIS [None]
  - BRONCHITIS [None]
  - SCOLIOSIS [None]
  - SINUS CONGESTION [None]
  - CONSTIPATION [None]
  - SEASONAL ALLERGY [None]
  - HYPERKALAEMIA [None]
  - METABOLIC SYNDROME [None]
  - ARTERIOSCLEROSIS [None]
  - PAIN [None]
  - PERIODONTITIS [None]
  - DYSLIPIDAEMIA [None]
  - MYOCARDIAL INFARCTION [None]
  - OEDEMA PERIPHERAL [None]
  - GENERALISED OEDEMA [None]
  - ERECTILE DYSFUNCTION [None]
  - INTERMITTENT CLAUDICATION [None]
  - CARDIOMEGALY [None]
  - INJURY [None]
  - ORAL CAVITY FISTULA [None]
  - RHINORRHOEA [None]
  - CHOLECYSTITIS CHRONIC [None]
  - HAEMATURIA [None]
  - VOMITING [None]
  - NECK PAIN [None]
  - BACK PAIN [None]
  - MULTIPLE INJURIES [None]
  - OSTEOPOROSIS [None]
  - COUGH [None]
  - DEPRESSION [None]
  - HEADACHE [None]
  - HIATUS HERNIA [None]
  - VISUAL FIELD DEFECT [None]
  - DYSPHAGIA [None]
  - BLADDER MASS [None]
  - DECREASED INTEREST [None]
  - ANEURYSM [None]
  - HYPERPLASIA [None]
  - HERPES ZOSTER [None]
  - BLADDER CANCER [None]
  - CARDIAC FAILURE CONGESTIVE [None]
  - ARTHRALGIA [None]
  - SPINAL OSTEOARTHRITIS [None]
  - CHRONIC OBSTRUCTIVE PULMONARY DISEASE [None]
  - MEMORY IMPAIRMENT [None]
  - PNEUMONIA [None]
  - INTERSTITIAL LUNG DISEASE [None]
  - RENAL FAILURE CHRONIC [None]
  - DIABETIC NEPHROPATHY [None]
  - ANHEDONIA [None]
  - GASTROOESOPHAGEAL REFLUX DISEASE [None]
  - MITRAL VALVE INCOMPETENCE [None]
  - DILATATION ATRIAL [None]
  - CARDIOMYOPATHY [None]
  - LEFT VENTRICULAR HYPERTROPHY [None]
  - EJECTION FRACTION DECREASED [None]
  - DYSPNOEA [None]
  - DIZZINESS [None]
  - ARRHYTHMIA [None]
  - NAUSEA [None]
  - MUSCULOSKELETAL PAIN [None]
  - OSTEONECROSIS OF JAW [None]
  - ABSCESS [None]
  - ATRIAL FIBRILLATION [None]
  - PATHOLOGICAL FRACTURE [None]
  - CHOLELITHIASIS [None]
  - HAEMOPTYSIS [None]
  - CELLULITIS [None]
